FAERS Safety Report 4798069-8 (Version None)
Quarter: 2005Q4

REPORT INFORMATION
  Report Type: 
  Country: None (occurrence: None)
  Receive Date: 20051006
  Receipt Date: 20051006
  Transmission Date: 20060501
  Serious: Yes (Other)
  Sender: FDA-Public Use
  Company Number: None

PATIENT
  Sex: Male
  Weight: 124.7392 kg

DRUGS (3)
  1. ALLOPURINOL 100MG TAB [Suspect]
     Indication: GOUT
  2. HYDROCHLOROTHIAZIDE 25MG TAB [Suspect]
     Indication: BLOOD PRESSURE
  3. HYDROCHLOROTHIAZIDE 25MG TAB [Suspect]
     Indication: FLUID RETENTION

REACTIONS (2)
  - CONFUSIONAL STATE [None]
  - MEDICATION ERROR [None]
